FAERS Safety Report 7403287-6 (Version None)
Quarter: 2011Q2

REPORT INFORMATION
  Report Type: 
  Country: None (occurrence: None)
  Receive Date: 20110408
  Receipt Date: 20110326
  Transmission Date: 20111010
  Serious: Yes (Hospitalization)
  Sender: FDA-Public Use
  Company Number: DE-JNJFOC-20110311210

PATIENT
  Age: 19 Year
  Sex: Female

DRUGS (4)
  1. AZATHIOPRINE [Concomitant]
  2. STEROIDS NOS [Concomitant]
  3. INFECTION PROPHYLAXIS [Suspect]
     Indication: PROPHYLAXIS
  4. REMICADE [Suspect]
     Indication: COLITIS ULCERATIVE
     Route: 042

REACTIONS (2)
  - SUPRAVENTRICULAR TACHYCARDIA [None]
  - ATRIAL TACHYCARDIA [None]
